FAERS Safety Report 9482818 (Version 1)
Quarter: 2013Q3

REPORT INFORMATION
  Report Type: Report from Study
  Country: DE (occurrence: DE)
  Receive Date: 20130828
  Receipt Date: 20130828
  Transmission Date: 20140515
  Serious: Yes (Life-Threatening, Hospitalization)
  Sender: FDA-Public Use
  Company Number: DE-ROCHE-1266638

PATIENT
  Age: 57 Year
  Sex: Female

DRUGS (5)
  1. RITUXIMAB [Suspect]
     Indication: RHEUMATOID ARTHRITIS
     Dosage: LAST DOSE PRIOR TO SAE ON 17/JAN/2012 AND 11/SEP/2012.
     Route: 065
  2. METHOTREXATE [Suspect]
     Indication: RHEUMATOID ARTHRITIS
     Route: 065
  3. METHOTREXATE [Suspect]
     Route: 065
  4. METHOTREXATE [Suspect]
     Route: 065
  5. METHOTREXATE [Suspect]
     Route: 065

REACTIONS (5)
  - Pulmonary embolism [Recovered/Resolved]
  - Weight bearing difficulty [Unknown]
  - Rib fracture [Unknown]
  - Thrombosis [Unknown]
  - Lymphoedema [Unknown]
